FAERS Safety Report 5213032-0 (Version None)
Quarter: 2007Q1

REPORT INFORMATION
  Report Type: 
  Country: None (occurrence: None)
  Receive Date: 20070117
  Receipt Date: 20070117
  Transmission Date: 20070707
  Serious: Yes (Life-Threatening)
  Sender: FDA-Public Use
  Company Number: None

PATIENT
  Sex: Female
  Weight: 52.1637 kg

DRUGS (13)
  1. PAXIL [Suspect]
     Indication: DEPRESSION
  2. PAXIL [Suspect]
     Indication: PANIC ATTACK
  3. XANAX [Concomitant]
  4. LITHIUM CARBONATE [Concomitant]
  5. DEPAKOTE [Concomitant]
  6. TOPAMAX [Concomitant]
  7. CONCERTA [Concomitant]
  8. ZOLOFT [Concomitant]
  9. GEODONE [Concomitant]
  10. ABILIFY [Concomitant]
  11. PAXIL [Concomitant]
  12. TOPAMAX [Concomitant]
  13. XANAX [Concomitant]

REACTIONS (10)
  - ANGER [None]
  - ANXIETY [None]
  - BIPOLAR DISORDER [None]
  - CONDITION AGGRAVATED [None]
  - DEPRESSION [None]
  - EDUCATIONAL PROBLEM [None]
  - HALLUCINATION, AUDITORY [None]
  - HALLUCINATION, VISUAL [None]
  - PARANOIA [None]
  - SUICIDAL IDEATION [None]
